FAERS Safety Report 16870147 (Version 1)
Quarter: 2019Q3

REPORT INFORMATION
  Report Type: Spontaneous
  Country: DK (occurrence: DK)
  Receive Date: 20190930
  Receipt Date: 20190930
  Transmission Date: 20191005
  Serious: Yes (Death)
  Sender: FDA-Public Use
  Company Number: DK-MYLANLABS-2019M1091219

PATIENT
  Age: 42 Year
  Sex: Female

DRUGS (9)
  1. PREGABALIN. [Suspect]
     Active Substance: PREGABALIN
     Indication: ANXIETY
     Dosage: STYRKE: 150 MG.
     Route: 048
     Dates: start: 20160708
  2. VERAPAMIL HEXAL [Suspect]
     Active Substance: VERAPAMIL HYDROCHLORIDE
     Indication: CLUSTER HEADACHE
     Dosage: STYRKE: 80 MG.
     Route: 048
     Dates: start: 20170919
  3. KETOGAN                            /00129101/ [Suspect]
     Active Substance: KETOBEMIDONE HYDROCHLORIDE
     Indication: PAIN
     Dosage: STYRKE: 5 + 25 MG.
     Route: 048
     Dates: start: 20141114
  4. AMITRIPTYLIN [Suspect]
     Active Substance: AMITRIPTYLINE
     Indication: DEPRESSION
     Dosage: STYRKE: 50 MG.
     Route: 048
     Dates: start: 20140617
  5. LAMOTRIGINE. [Concomitant]
     Active Substance: LAMOTRIGINE
     Indication: PAIN
     Dosage: STYRKE: 50 MG.
     Route: 048
     Dates: start: 20141008
  6. CLONAZEPAM. [Suspect]
     Active Substance: CLONAZEPAM
     Indication: PRODUCT USED FOR UNKNOWN INDICATION
     Dosage: DOSIS: UKENDT.
     Route: 048
  7. METOCLOPRAMIDE ACCORD [Suspect]
     Active Substance: METOCLOPRAMIDE
     Indication: VOMITING
     Dosage: STYRKE: 10 MG.
     Route: 048
     Dates: start: 20140829
  8. NORITREN [Suspect]
     Active Substance: NORTRIPTYLINE HYDROCHLORIDE
     Indication: DEPRESSION
     Dosage: STYRKE: 50 MG.
     Route: 048
     Dates: start: 20140121
  9. TRAMADOL AUROBINDO [Suspect]
     Active Substance: TRAMADOL HYDROCHLORIDE
     Indication: PAIN
     Dosage: STYRKE: 50 MG.
     Route: 048

REACTIONS (3)
  - Toxicity to various agents [Fatal]
  - Sedation [Fatal]
  - Respiratory depression [Fatal]

NARRATIVE: CASE EVENT DATE: 20190303
